FAERS Safety Report 12859446 (Version 2)
Quarter: 2016Q4

REPORT INFORMATION
  Report Type: Report from Study
  Country: LT (occurrence: LT)
  Receive Date: 20161018
  Receipt Date: 20161020
  Transmission Date: 20170207
  Serious: Yes (Hospitalization)
  Sender: FDA-Public Use
  Company Number: LT-B.I. PHARMACEUTICALS,INC./RIDGEFIELD-2016-BI-066016

PATIENT
  Age: 13 Year
  Sex: Male
  Weight: 71 kg

DRUGS (1)
  1. DABIGATRAN [Suspect]
     Active Substance: DABIGATRAN
     Indication: EMBOLISM VENOUS
     Route: 065

REACTIONS (1)
  - Tension headache [Recovered/Resolved]

NARRATIVE: CASE EVENT DATE: 20161003
